FAERS Safety Report 24754643 (Version 1)
Quarter: 2024Q4

REPORT INFORMATION
  Report Type: Spontaneous
  Country: DE (occurrence: DE)
  Receive Date: 20241219
  Receipt Date: 20241219
  Transmission Date: 20250115
  Serious: Yes (Other)
  Sender: ALEXION PHARMACEUTICALS
  Company Number: None

PATIENT

DRUGS (4)
  1. DAPAGLIFLOZIN [Suspect]
     Active Substance: DAPAGLIFLOZIN
     Dosage: UNK
     Route: 065
  2. DAPAGLIFLOZIN [Suspect]
     Active Substance: DAPAGLIFLOZIN
     Dosage: UNK
     Route: 065
  3. DAPAGLIFLOZIN [Suspect]
     Active Substance: DAPAGLIFLOZIN
     Dosage: UNK
     Route: 065
  4. DAPAGLIFLOZIN [Suspect]
     Active Substance: DAPAGLIFLOZIN
     Dosage: UNK
     Route: 065

REACTIONS (13)
  - Genital tract inflammation [Unknown]
  - Anal inflammation [Unknown]
  - Fistula [Unknown]
  - Cystitis noninfective [Unknown]
  - Pollakiuria [Unknown]
  - Nocturia [Unknown]
  - Urine odour abnormal [Unknown]
  - Tremor [Unknown]
  - Dry mouth [Unknown]
  - Confusional state [Unknown]
  - Food craving [Unknown]
  - Pruritus [Unknown]
  - Pain in extremity [Unknown]
